FAERS Safety Report 5128398-X (Version None)
Quarter: 2006Q4

REPORT INFORMATION
  Report Type: 
  Country: None (occurrence: None)
  Receive Date: 20061011
  Receipt Date: 20060919
  Transmission Date: 20070319
  Serious: Yes (Death)
  Sender: FDA-Public Use
  Company Number: US200608005140

PATIENT
  Age: 74 Year
  Sex: Male
  Weight: 87.5 kg

DRUGS (6)
  1. XIGRIS [Suspect]
     Indication: KLEBSIELLA SEPSIS
     Dosage: INTRAVENOUS
     Route: 042
     Dates: start: 20060701
  2. VASOPRESSIN AND ANALOGUES [Concomitant]
  3. NEOSYNEPHRIN-POS (PHENYLEPHRINE HYDROCHLORIDE) [Concomitant]
  4. AMIODARONE HCL [Concomitant]
  5. EPINEPHRINE [Concomitant]
  6. LEVOPHED [Concomitant]

REACTIONS (1)
  - ACIDOSIS [None]
